FAERS Safety Report 8505812-0 (Version None)
Quarter: 2012Q3

REPORT INFORMATION
  Report Type: 
  Country: None (occurrence: None)
  Receive Date: 20120712
  Receipt Date: 20120703
  Transmission Date: 20120928
  Serious: Yes (Hospitalization)
  Sender: FDA-Public Use
  Company Number: BR-ASTRAZENECA-2012SE40725

PATIENT
  Age: 61 Year
  Sex: Female
  Weight: 60 kg

DRUGS (9)
  1. CLONAZEPAM [Concomitant]
     Indication: ANXIETY
     Dosage: BID
     Route: 048
  2. UNSPECIFIED [Concomitant]
     Indication: LIVER DISORDER
     Route: 048
     Dates: start: 19730101
  3. LAMOTRIGINE [Concomitant]
     Route: 048
     Dates: start: 20100101
  4. SEROQUEL XR [Suspect]
     Indication: BIPOLAR DISORDER
     Dosage: 2 TABLETS BID
     Route: 048
     Dates: start: 20120401
  5. SEROQUEL XR [Suspect]
     Route: 048
  6. UNSPECIFIED [Concomitant]
     Indication: RENAL DISORDER
     Route: 048
     Dates: start: 19730101
  7. UNKNOWN [Suspect]
     Indication: BIPOLAR DISORDER
     Route: 048
     Dates: end: 20120401
  8. ANASTROZOLE [Suspect]
     Indication: BREAST CANCER
     Dosage: DAILY
     Route: 048
     Dates: start: 20100101
  9. CLONAZEPAM [Concomitant]
     Route: 048

REACTIONS (10)
  - MEMORY IMPAIRMENT [None]
  - INSOMNIA [None]
  - SELF ESTEEM DECREASED [None]
  - RESTLESSNESS [None]
  - BREAST INFECTION [None]
  - LOGORRHOEA [None]
  - ANXIETY [None]
  - OFF LABEL USE [None]
  - BIPOLAR DISORDER [None]
  - DRUG INEFFECTIVE [None]
